FAERS Safety Report 22143492 (Version 1)
Quarter: 2023Q1

REPORT INFORMATION
  Report Type: Spontaneous
  Country: ES (occurrence: ES)
  Receive Date: 20230327
  Receipt Date: 20230327
  Transmission Date: 20230418
  Serious: Yes (Hospitalization, Other)
  Sender: FDA-Public Use
  Company Number: None

PATIENT
  Age: 27 Year
  Sex: Female

DRUGS (1)
  1. ACETAMINOPHEN [Suspect]
     Active Substance: ACETAMINOPHEN
     Indication: Product used for unknown indication
     Dosage: 1 TOTAL, UNIQUE DOSE 40 TABLETS(40 GRAMS)+ALCOHOL
     Route: 048
     Dates: start: 20230226, end: 20230226

REACTIONS (3)
  - Depressed level of consciousness [Recovered/Resolved]
  - Suicidal ideation [Unknown]
  - Intentional overdose [Recovered/Resolved]

NARRATIVE: CASE EVENT DATE: 20230226
